FAERS Safety Report 9281331 (Version 2)
Quarter: 2013Q3

REPORT INFORMATION
  Report Type: Spontaneous
  Country: US (occurrence: US)
  Receive Date: 20130509
  Receipt Date: 20130912
  Transmission Date: 20140515
  Serious: Yes (Hospitalization, Congenital Anomaly, Other)
  Sender: FDA-Public Use
  Company Number: US-PFIZER INC-2013141175

PATIENT
  Sex: Male
  Weight: 3.8 kg

DRUGS (12)
  1. IBUPROFEN [Suspect]
     Route: 064
  2. TOPAMAX [Suspect]
     Indication: MIGRAINE
     Dosage: UNK
     Route: 064
     Dates: start: 200608, end: 200702
  3. BENADRYL [Suspect]
     Indication: ANTIALLERGIC THERAPY
     Route: 064
  4. COMPAZINE [Suspect]
     Indication: NAUSEA
     Route: 064
  5. CLOBETASOL [Suspect]
     Indication: STEROID THERAPY
     Route: 064
  6. ALBUTEROL [Concomitant]
     Indication: ASTHMA
     Dosage: 90 UG, 1X/DAY
     Route: 064
     Dates: start: 20061107, end: 200711
  7. CYCLOBENZAPRINE [Concomitant]
     Indication: HEADACHE
     Dosage: 10 MG, UNK
     Route: 064
     Dates: start: 20070410
  8. COMBIVENT [Concomitant]
     Indication: RESPIRATORY TRACT INFECTION
     Dosage: UNK
     Route: 064
     Dates: start: 20061116, end: 20061126
  9. COMBIVENT [Concomitant]
     Indication: ASTHMA
  10. AMOXICILLIN [Concomitant]
     Indication: RESPIRATORY TRACT INFECTION
     Route: 064
  11. KETEK [Concomitant]
     Indication: RESPIRATORY TRACT INFECTION
     Dosage: 400 MG, 2X/DAY
     Route: 064
     Dates: start: 20061107, end: 20061117
  12. EFEXOR XR [Concomitant]
     Route: 064

REACTIONS (11)
  - Maternal exposure during pregnancy [Recovered/Resolved with Sequelae]
  - Cleft lip [Recovered/Resolved with Sequelae]
  - Cleft palate [Recovered/Resolved with Sequelae]
  - Congenital foot malformation [Unknown]
  - Eustachian tube dysfunction [Recovered/Resolved]
  - Deafness neurosensory [Unknown]
  - Otitis media chronic [Recovering/Resolving]
  - Emotional distress [Unknown]
  - Deformity [Unknown]
  - Oroantral fistula [Not Recovered/Not Resolved]
  - Facial pain [Recovered/Resolved]
